FAERS Safety Report 8401058-5 (Version None)
Quarter: 2012Q2

REPORT INFORMATION
  Report Type: 
  Country: None (occurrence: None)
  Receive Date: 20120525
  Receipt Date: 20120517
  Transmission Date: 20120825
  Serious: Yes (Hospitalization, Other)
  Sender: FDA-Public Use
  Company Number: ACO_30106_2012

PATIENT
  Age: 58 Year
  Sex: Female

DRUGS (6)
  1. AMPYRA [Suspect]
     Indication: PRODUCT USED FOR UNKNOWN INDICATION
     Dosage: 10 MG, Q 12 HRS, ORAL
     Route: 048
     Dates: start: 20111101, end: 20120101
  2. VITAMIN E /00110501/ (TOCOPHYEROL) [Concomitant]
  3. CRESTOR [Concomitant]
  4. MEPERIDINE HCL [Concomitant]
  5. PROZAC [Concomitant]
  6. TRAZIODONE (TRAZODONE) [Concomitant]

REACTIONS (7)
  - GAIT DISTURBANCE [None]
  - WRONG TECHNIQUE IN DRUG USAGE PROCESS [None]
  - TREMOR [None]
  - CONFUSIONAL STATE [None]
  - CONVULSION [None]
  - DYSPHEMIA [None]
  - PALPITATIONS [None]
